FAERS Safety Report 9888554 (Version 1)
Quarter: 2014Q1

REPORT INFORMATION
  Report Type: Spontaneous
  Country: IT (occurrence: IT)
  Receive Date: 20140211
  Receipt Date: 20140211
  Transmission Date: 20141002
  Serious: Yes (Other)
  Sender: FDA-Public Use
  Company Number: IT-WATSON-2014-01876

PATIENT
  Age: 82 Year
  Sex: Female

DRUGS (5)
  1. LEVOFLOXACIN (UNKNOWN) [Suspect]
     Indication: INGROWING NAIL
     Dosage: 500 MG, TOTAL
     Route: 048
     Dates: start: 20131221, end: 20131221
  2. ARAVA [Concomitant]
     Dosage: 20 MG, UNK
  3. SELOKEN                            /00376902/ [Concomitant]
     Dosage: 100 MG, UNK
  4. UNIPRIL                            /00574902/ [Concomitant]
     Dosage: 1.5 MG, UNK
  5. LASIX                              /00032601/ [Concomitant]
     Dosage: 25 MG, UNK

REACTIONS (3)
  - Lip oedema [Recovered/Resolved]
  - Pruritus [Recovered/Resolved]
  - Urticaria [Recovered/Resolved]
